FAERS Safety Report 5474038-X (Version None)
Quarter: 2007Q4

REPORT INFORMATION
  Report Type: 
  Country: None (occurrence: None)
  Receive Date: 20071002
  Receipt Date: 20070920
  Transmission Date: 20080405
  Serious: Yes (Hospitalization)
  Sender: FDA-Public Use
  Company Number: PHHO2007DE15513

PATIENT
  Age: 55 Year
  Sex: Male

DRUGS (3)
  1. NO TREATMENT RECEIVED NOMED [Suspect]
     Indication: LIVER TRANSPLANT
  2. SIMULECT [Suspect]
     Indication: LIVER TRANSPLANT
     Route: 042
     Dates: start: 20070828, end: 20070828
  3. NEORAL [Concomitant]
     Indication: LIVER TRANSPLANT
     Dosage: 225 MG, BID
     Route: 048
     Dates: start: 20070918

REACTIONS (3)
  - HAEMATOMA EVACUATION [None]
  - POST PROCEDURAL HAEMATOMA [None]
  - SUPERINFECTION [None]
